FAERS Safety Report 20438271 (Version 1)
Quarter: 2022Q1

REPORT INFORMATION
  Report Type: Report from Study
  Country: JP (occurrence: JP)
  Receive Date: 20220207
  Receipt Date: 20220207
  Transmission Date: 20220424
  Serious: Yes (Hospitalization, Disabling)
  Sender: FDA-Public Use
  Company Number: JP-Recordati Rare Diseases Inc.-JP-R13005-19-00049

PATIENT
  Age: 0 Year
  Sex: Female
  Weight: .845 kg

DRUGS (19)
  1. NEOPROFEN [Suspect]
     Active Substance: IBUPROFEN LYSINE
     Indication: Patent ductus arteriosus
     Dosage: 8.5 MILLIGRAM, QD
     Route: 042
     Dates: start: 20180911, end: 20180911
  2. DOPAMINE HYDROCHLORIDE [Concomitant]
     Active Substance: DOPAMINE HYDROCHLORIDE
     Indication: Sepsis
     Dosage: UNK UNK, UNK
     Route: 042
     Dates: start: 20180911, end: 20180925
  3. DOPAMINE HYDROCHLORIDE [Concomitant]
     Active Substance: DOPAMINE HYDROCHLORIDE
     Indication: Hypotension
  4. DOBUTAMINE HYDROCHLORIDE [Concomitant]
     Active Substance: DOBUTAMINE HYDROCHLORIDE
     Indication: Group B streptococcus neonatal sepsis
     Dosage: UNK, UNK
     Route: 042
     Dates: start: 20180911, end: 20180925
  5. DOBUTAMINE HYDROCHLORIDE [Concomitant]
     Active Substance: DOBUTAMINE HYDROCHLORIDE
     Indication: Hypotension
  6. PLEAMIN P [Concomitant]
     Indication: Dyspepsia
     Dosage: UNK, UNK
     Route: 042
     Dates: start: 20180911, end: 20181019
  7. CALCIUM GLUCONATE [Concomitant]
     Active Substance: CALCIUM GLUCONATE
     Indication: Dyspepsia
     Dosage: UNK, UNK
     Route: 042
     Dates: start: 20180911, end: 20181018
  8. MULTAMIN [ASCORBIC ACID;BIOTIN;COLECALCIFEROL;CYANOCOBALAMIN;FOLIC ACI [Concomitant]
     Indication: Dyspepsia
     Dosage: UNK, UNK
     Route: 042
     Dates: start: 20180911, end: 20181019
  9. THROMBOMODULIN ALFA [Concomitant]
     Active Substance: THROMBOMODULIN ALFA
     Indication: Disseminated intravascular coagulation
     Dosage: UNK, UNK
     Route: 042
     Dates: start: 20180911, end: 20180911
  10. LASIX [Concomitant]
     Active Substance: FUROSEMIDE
     Indication: Circulatory collapse
     Dosage: UNK, UNK
     Route: 042
     Dates: start: 20180911, end: 20180914
  11. NEUART [Concomitant]
     Active Substance: ANTITHROMBIN III HUMAN
     Indication: Disseminated intravascular coagulation
     Dosage: UNK, UNK
     Route: 042
     Dates: start: 20180911, end: 20180912
  12. AMIKACIN SULFATE [Concomitant]
     Active Substance: AMIKACIN SULFATE
     Indication: Sepsis
     Dosage: UNK, UNK
     Route: 042
     Dates: start: 20180911, end: 20180913
  13. AMPICILLIN SODIUM [Concomitant]
     Active Substance: AMPICILLIN SODIUM
     Indication: Sepsis
     Dosage: UNK, UNK
     Route: 042
     Dates: start: 20180911, end: 20180925
  14. MENATETRENONE [Concomitant]
     Active Substance: MENATETRENONE
     Indication: Disseminated intravascular coagulation
     Dosage: UNK, UNK
     Route: 042
     Dates: start: 20180911, end: 20180911
  15. MENATETRENONE [Concomitant]
     Active Substance: MENATETRENONE
     Dosage: UNK
     Route: 065
     Dates: start: 20180914, end: 20180914
  16. GLUCOSE OTSUKA [Concomitant]
     Indication: Dyspepsia
     Dosage: UNK, UNK
     Route: 042
     Dates: start: 20180911, end: 20181020
  17. HEPARIN SODIUM [Concomitant]
     Active Substance: HEPARIN SODIUM
     Indication: Infusion
     Dosage: UNK, UNK
     Route: 042
     Dates: start: 20180911, end: 20180916
  18. NAFAMOSTAT MESYLATE [Concomitant]
     Active Substance: NAFAMOSTAT MESYLATE
     Indication: Sepsis
     Dosage: UNK, UNK
     Route: 065
     Dates: start: 20180911, end: 20180911
  19. CALFACTANT [Concomitant]
     Active Substance: CALFACTANT
     Indication: Neonatal respiratory distress syndrome
     Dosage: UNK, UNK
     Route: 042
     Dates: start: 20180911, end: 20180911

REACTIONS (3)
  - Posthaemorrhagic hydrocephalus [Recovered/Resolved with Sequelae]
  - Intraventricular haemorrhage [Recovered/Resolved with Sequelae]
  - Anaemia [Recovered/Resolved]

NARRATIVE: CASE EVENT DATE: 20180912
